FAERS Safety Report 12446202 (Version 1)
Quarter: 2016Q2

REPORT INFORMATION
  Report Type: Spontaneous
  Country: US (occurrence: None)
  Receive Date: 20160607
  Receipt Date: 20160607
  Transmission Date: 20160815
  Serious: Yes (Other)
  Sender: FDA-Public Use
  Company Number: None

PATIENT
  Age: 41 Year
  Sex: Female
  Weight: 80.74 kg

DRUGS (3)
  1. MIRENA [Suspect]
     Active Substance: LEVONORGESTREL
     Indication: CONTRACEPTION
     Route: 067
     Dates: start: 20110207, end: 20160201
  2. PRENATAL [Concomitant]
     Active Substance: VITAMINS
  3. LEVOTHOROXIN [Concomitant]

REACTIONS (1)
  - Premature menopause [None]

NARRATIVE: CASE EVENT DATE: 20160201
